FAERS Safety Report 6935939-6 (Version None)
Quarter: 2010Q3

REPORT INFORMATION
  Report Type: 
  Country: None (occurrence: None)
  Receive Date: 20100817
  Receipt Date: 20100803
  Transmission Date: 20110219
  Serious: Yes (Hospitalization)
  Sender: FDA-Public Use
  Company Number: CV20100420

PATIENT
  Age: 26 Year
  Sex: Female

DRUGS (4)
  1. ONDANSETRON [Suspect]
     Indication: PROPHYLAXIS
     Dosage: 4 MG, (THREE DAYS LATER)
  2. FENTANYL CITRATE [Concomitant]
  3. SEVOFLURANE [Concomitant]
  4. DEXAMETHASONE [Concomitant]

REACTIONS (1)
  - MIGRAINE [None]
